FAERS Safety Report 8491259-2 (Version None)
Quarter: 2012Q3

REPORT INFORMATION
  Report Type: 
  Country: None (occurrence: None)
  Receive Date: 20120706
  Receipt Date: 20120622
  Transmission Date: 20120928
  Serious: Yes (Other)
  Sender: FDA-Public Use
  Company Number: ES-UCBSA-047803

PATIENT
  Age: 6 Year
  Sex: Female

DRUGS (4)
  1. KEPPRA [Suspect]
     Dosage: DOSE: 15MG/KG/DAY
  2. KEPPRA [Suspect]
     Dosage: DOSE: 53 MG/KG DAILY
  3. KEPPRA [Suspect]
     Indication: EPILEPSY
     Dosage: 100MG/ML, 300 ML BOTTLE
     Route: 048
     Dates: start: 20090917, end: 20100625
  4. VALPROIC ACID [Concomitant]
     Indication: EPILEPSY

REACTIONS (4)
  - VOMITING [None]
  - DYSPHEMIA [None]
  - AUTISM [None]
  - HEADACHE [None]
